FAERS Safety Report 17191214 (Version 3)
Quarter: 2020Q1

REPORT INFORMATION
  Report Type: Spontaneous
  Country: SE (occurrence: SE)
  Receive Date: 20191223
  Receipt Date: 20200127
  Transmission Date: 20200409
  Serious: Yes (Hospitalization)
  Sender: FDA-Public Use
  Company Number: SE-PFIZER INC-2019549661

PATIENT
  Sex: Male

DRUGS (2)
  1. PROPAVAN [Suspect]
     Active Substance: PROPIOMAZINE
     Dosage: 750 MG, UNK
     Route: 048
     Dates: start: 20190316, end: 20190316
  2. LYRICA [Suspect]
     Active Substance: PREGABALIN
     Dosage: 4.2 G, SINGLE (28 X150 MG)
     Route: 048
     Dates: start: 20190316, end: 20190316

REACTIONS (2)
  - Intentional overdose [Unknown]
  - Intentional self-injury [Unknown]

NARRATIVE: CASE EVENT DATE: 20190316
